FAERS Safety Report 25741304 (Version 2)
Quarter: 2025Q3

REPORT INFORMATION
  Report Type: Spontaneous
  Country: US (occurrence: US)
  Receive Date: 20250829
  Receipt Date: 20250916
  Transmission Date: 20251021
  Serious: Yes (Other)
  Sender: NOVO NORDISK
  Company Number: US-NOVOPROD-1506196

PATIENT
  Age: 78 Year
  Sex: Female

DRUGS (3)
  1. OZEMPIC [Suspect]
     Active Substance: SEMAGLUTIDE
     Indication: Type 2 diabetes mellitus
     Dosage: 2 MG, QW
     Route: 058
     Dates: start: 2024, end: 20250811
  2. OZEMPIC [Suspect]
     Active Substance: SEMAGLUTIDE
     Route: 058
     Dates: end: 20250818
  3. ATORVASTATIN [Concomitant]
     Active Substance: ATORVASTATIN
     Indication: Product used for unknown indication
     Dates: end: 20250818

REACTIONS (12)
  - Hepatitis [Unknown]
  - Viral infection [Unknown]
  - Acute stress disorder [Not Recovered/Not Resolved]
  - Speech disorder [Recovered/Resolved]
  - Fall [Recovered/Resolved]
  - Polyuria [Recovered/Resolved]
  - Walking aid user [Recovered/Resolved]
  - Muscular weakness [Recovered/Resolved]
  - Unevaluable event [Unknown]
  - Hypoglycaemia [Recovered/Resolved]
  - Asthenia [Unknown]
  - Incorrect dose administered [Unknown]

NARRATIVE: CASE EVENT DATE: 20250814
